FAERS Safety Report 17170955 (Version 3)
Quarter: 2020Q1

REPORT INFORMATION
  Report Type: Spontaneous
  Country: FR (occurrence: FR)
  Receive Date: 20191218
  Receipt Date: 20200211
  Transmission Date: 20200409
  Serious: Yes (Hospitalization)
  Sender: FDA-Public Use
  Company Number: NVSC2019FR069479

PATIENT
  Age: 55 Year
  Sex: Female
  Weight: 75.5 kg

DRUGS (7)
  1. DICLOFENAC [Suspect]
     Active Substance: DICLOFENAC
     Indication: TOXICITY TO VARIOUS AGENTS
     Dosage: 3 DF
     Route: 048
     Dates: start: 20191027, end: 20191027
  2. SMECTA (ALUMINIUM MAGNESIUM SILICATE) [Suspect]
     Active Substance: MAGNESIUM ALUMINUM SILICATE
     Indication: TOXICITY TO VARIOUS AGENTS
     Dosage: NON PR?CIS?
     Route: 048
     Dates: start: 20191027, end: 20191027
  3. PARACETAMOL [Suspect]
     Active Substance: ACETAMINOPHEN
     Indication: TOXICITY TO VARIOUS AGENTS
     Dosage: 8 G
     Route: 048
     Dates: start: 20191027, end: 20191027
  4. ZOPICLONE [Suspect]
     Active Substance: ZOPICLONE
     Indication: PRODUCT USED FOR UNKNOWN INDICATION
     Dosage: 4 DF
     Route: 048
     Dates: start: 20191027, end: 20191027
  5. SERESTA [Suspect]
     Active Substance: OXAZEPAM
     Indication: TOXICITY TO VARIOUS AGENTS
     Dosage: 1 PLAQUETTE
     Route: 048
     Dates: start: 20191027, end: 20191027
  6. IMODIUM [Suspect]
     Active Substance: LOPERAMIDE HYDROCHLORIDE
     Indication: TOXICITY TO VARIOUS AGENTS
     Dosage: 10 DF
     Route: 048
     Dates: start: 20191027, end: 20191027
  7. ZOPICLONE [Suspect]
     Active Substance: ZOPICLONE
     Indication: TOXICITY TO VARIOUS AGENTS

REACTIONS (3)
  - Ataxia [Recovered/Resolved]
  - Respiratory failure [Recovered/Resolved]
  - Coma [Recovered/Resolved]

NARRATIVE: CASE EVENT DATE: 20191027
